FAERS Safety Report 9706053 (Version 3)
Quarter: 2013Q4

REPORT INFORMATION
  Report Type: Report from Study
  Country: US (occurrence: US)
  Receive Date: 20131123
  Receipt Date: 20131220
  Transmission Date: 20140711
  Serious: Yes (Hospitalization)
  Sender: FDA-Public Use
  Company Number: US-B.I. PHARMACEUTICALS,INC./RIDGEFIELD-2013-BI-33486BI

PATIENT
  Age: 72 Year
  Sex: Female

DRUGS (20)
  1. GILOTRIF [Suspect]
     Indication: NON-SMALL CELL LUNG CANCER
     Dosage: 40 MG
     Route: 048
     Dates: start: 20131016
  2. XANAX [Concomitant]
     Indication: ANXIETY
  3. PROCRIT [Concomitant]
     Indication: HAEMOGLOBIN
     Dosage: ROUTE: INJECTION
  4. LUTEIN [Concomitant]
     Indication: EYE DISORDER
     Dosage: 12 MG
  5. VALTREX [Concomitant]
     Indication: PROPHYLAXIS
     Dosage: 1000 MG
  6. ZOFRAN [Concomitant]
     Indication: NAUSEA
  7. ATENOLOL [Concomitant]
     Dosage: 100 MG
  8. NORVASC [Concomitant]
     Dosage: 5 MG
  9. BALSALAZIDE [Concomitant]
     Dosage: 2250 MG
  10. COENZYME Q10 [Concomitant]
     Dosage: 100 MG
  11. COPPER [Concomitant]
     Dosage: 2 MG
  12. LISINOPRIL [Concomitant]
     Dosage: 40 MG
  13. SIMVASTATIN [Concomitant]
     Dosage: 20 MG
  14. ZINC [Concomitant]
     Dosage: 100 MG
  15. LORTAB/NORCO [Concomitant]
     Dosage: 1950 NR
  16. DURAGESIC [Concomitant]
     Dosage: 16.6667 MG
  17. LIDOCAINE [Concomitant]
     Route: 061
  18. FOLIC ACID [Concomitant]
     Dosage: 800 MCG
  19. POTASSIUM [Concomitant]
     Dosage: 20 MEQ
  20. TYLENOL [Concomitant]
     Indication: PYREXIA

REACTIONS (24)
  - Pain in extremity [Recovered/Resolved]
  - Pain [Not Recovered/Not Resolved]
  - Spinal compression fracture [Not Recovered/Not Resolved]
  - Vertebroplasty [Unknown]
  - Diarrhoea [Not Recovered/Not Resolved]
  - Nail ridging [Not Recovered/Not Resolved]
  - Diarrhoea [Recovered/Resolved]
  - Nausea [Recovered/Resolved]
  - Vomiting [Recovered/Resolved]
  - Rash [Recovered/Resolved]
  - Pruritus [Recovered/Resolved]
  - Urticaria [Recovered/Resolved]
  - Diarrhoea [Recovered/Resolved]
  - Nail disorder [Recovered/Resolved]
  - Decreased appetite [Unknown]
  - Nail growth abnormal [Not Recovered/Not Resolved]
  - Vomiting [Recovered/Resolved]
  - Musculoskeletal pain [Not Recovered/Not Resolved]
  - Pain in extremity [Not Recovered/Not Resolved]
  - Diarrhoea [Not Recovered/Not Resolved]
  - Onychoclasis [Not Recovered/Not Resolved]
  - Ingrowing nail [Not Recovered/Not Resolved]
  - Weight decreased [Not Recovered/Not Resolved]
  - Decreased appetite [Not Recovered/Not Resolved]
